FAERS Safety Report 10034809 (Version 1)
Quarter: 2014Q1

REPORT INFORMATION
  Report Type: Spontaneous
  Country: US (occurrence: None)
  Receive Date: 20140306
  Receipt Date: 20140306
  Transmission Date: 20141002
  Serious: Yes (Hospitalization)
  Sender: FDA-Public Use
  Company Number: 163-21880-12112946

PATIENT
  Age: 80 Year
  Sex: Male

DRUGS (17)
  1. REVLIMID [Suspect]
     Indication: PLASMA CELL MYELOMA
     Dosage: 21 IN 28 D
     Route: 048
     Dates: start: 20111122
  2. DILTIAZEM [Concomitant]
  3. ETODOLAC [Concomitant]
  4. FLUOXETINE HCL (FLUOXETINE HYDROCHLORIDE) [Concomitant]
  5. FUROSEMIDE [Concomitant]
  6. GLIPIZIDE [Concomitant]
  7. KOMBIGLYZE [Concomitant]
  8. METOPROLOL [Concomitant]
  9. OMEPRAZOLE [Concomitant]
  10. PANTOPRAZOLE [Concomitant]
  11. OXYCODONE [Concomitant]
  12. PRAVASTATIN [Concomitant]
  13. PROMETHAZINE [Concomitant]
  14. VESICARE (SOLIFENACIN SUCCINATE) [Concomitant]
  15. OXYCONTIN (OXYCODONE HYDROCHLORIDE) [Concomitant]
  16. ALLOPURINOL [Concomitant]
  17. IBUPROFEN [Concomitant]

REACTIONS (1)
  - Corynebacterium sepsis [None]
